FAERS Safety Report 12238056 (Version 1)
Quarter: 2016Q2

REPORT INFORMATION
  Report Type: Spontaneous
  Country: US (occurrence: US)
  Receive Date: 20160405
  Receipt Date: 20160405
  Transmission Date: 20160815
  Serious: No
  Sender: FDA-Public Use
  Company Number: US-ACTAVIS-2015-16086

PATIENT
  Age: 54 Year
  Sex: Female

DRUGS (1)
  1. NICOTINE POLACRILEX [Suspect]
     Active Substance: NICOTINE
     Indication: SMOKING CESSATION THERAPY
     Dosage: 2 MG, UNKNOWN
     Route: 048

REACTIONS (6)
  - Dysgeusia [Not Recovered/Not Resolved]
  - Product use issue [Not Recovered/Not Resolved]
  - Drug ineffective [Not Recovered/Not Resolved]
  - Gastrointestinal disorder [None]
  - Product quality issue [None]
  - Inappropriate schedule of drug administration [None]
